FAERS Safety Report 6932949-X (Version None)
Quarter: 2010Q3

REPORT INFORMATION
  Report Type: 
  Country: None (occurrence: None)
  Receive Date: 20100817
  Receipt Date: 20100804
  Transmission Date: 20110219
  Serious: Yes (Congenital Anomaly)
  Sender: FDA-Public Use
  Company Number: WAES 1008USA00735

PATIENT
  Sex: Female

DRUGS (1)
  1. CRIXIVAN [Suspect]
     Indication: HIV INFECTION
     Dosage: PO
     Route: 048

REACTIONS (2)
  - CONGENITAL ANOMALY [None]
  - MATERNAL DRUGS AFFECTING FOETUS [None]
